FAERS Safety Report 25506965 (Version 1)
Quarter: 2025Q3

REPORT INFORMATION
  Report Type: Spontaneous
  Country: US (occurrence: US)
  Receive Date: 20250702
  Receipt Date: 20250702
  Transmission Date: 20251021
  Serious: Yes (Hospitalization, Other)
  Sender: ELI LILLY AND COMPANY
  Company Number: US-ELI_LILLY_AND_COMPANY-US202506024245

PATIENT
  Age: 17 Year
  Sex: Male

DRUGS (9)
  1. CYMBALTA [Suspect]
     Active Substance: DULOXETINE HYDROCHLORIDE
     Indication: Anxiety
     Dosage: 120 MG, BID
     Route: 065
  2. BRIXADI [Suspect]
     Active Substance: BUPRENORPHINE
     Indication: Product used for unknown indication
     Dosage: 32 MG, WEEKLY (1/W)
     Route: 058
     Dates: start: 202402, end: 202406
  3. BRIXADI [Suspect]
     Active Substance: BUPRENORPHINE
     Route: 065
     Dates: start: 2024
  4. BRIXADI [Suspect]
     Active Substance: BUPRENORPHINE
     Route: 065
     Dates: start: 20250318
  5. FENTANYL [Suspect]
     Active Substance: FENTANYL
     Indication: Product used for unknown indication
     Route: 055
  6. METHAMPHETAMINE [Suspect]
     Active Substance: METHAMPHETAMINE
     Indication: Product used for unknown indication
     Route: 055
     Dates: start: 20250319
  7. SUBOXONE [Concomitant]
     Active Substance: BUPRENORPHINE HYDROCHLORIDE\NALOXONE HYDROCHLORIDE
     Indication: Product used for unknown indication
     Dosage: UNK, WEEKLY (1/W)
     Route: 065
  8. PROZAC [Concomitant]
     Active Substance: FLUOXETINE HYDROCHLORIDE
     Indication: Anxiety
     Route: 065
  9. HYDROXYZINE [Concomitant]
     Active Substance: HYDROXYZINE HYDROCHLORIDE
     Indication: Anxiety
     Dosage: UNK UNK, BID
     Route: 065

REACTIONS (6)
  - Serotonin syndrome [Unknown]
  - Drug withdrawal syndrome [Recovered/Resolved]
  - Overdose [Unknown]
  - Somnolence [Unknown]
  - Feeling abnormal [Unknown]
  - Drug withdrawal syndrome [Unknown]

NARRATIVE: CASE EVENT DATE: 20250201
